FAERS Safety Report 21966414 (Version 1)
Quarter: 2023Q1

REPORT INFORMATION
  Report Type: Spontaneous
  Country: US (occurrence: US)
  Receive Date: 20230208
  Receipt Date: 20230208
  Transmission Date: 20230418
  Serious: Yes (Other)
  Sender: FDA-Public Use
  Company Number: US-BRISTOL-MYERS SQUIBB COMPANY-2023-015602

PATIENT
  Age: 65 Year
  Sex: Female

DRUGS (26)
  1. POMALYST [Suspect]
     Active Substance: POMALIDOMIDE
     Indication: Plasma cell myeloma
     Dosage: TAKE ONE CAPSULE MY MOUTH EVERY DAY FOR 21 DAYS FOLLOWED BY 7 DAYS REST
     Route: 048
     Dates: start: 20230113
  2. DEXAMETHASONE [Concomitant]
     Active Substance: DEXAMETHASONE
     Indication: Product used for unknown indication
     Dosage: TAKE 5 TABLETS BY MOUTH ON DAYS 2,4,,5,9,11,12 OF EACH CYCLE OF CHEMOTHERAPY
     Route: 048
  3. REVLIMID [Concomitant]
     Active Substance: LENALIDOMIDE
     Dosage: 10.15,25 MG CAPSULE?TAKE 1 CAPSULE BY MOUTH EVERY DAY FOR 21 DAYS THEN TAKE A 7 DAY BREAK
  4. ACYCLOVIR [Concomitant]
     Active Substance: ACYCLOVIR
     Indication: Prophylaxis
     Dosage: TAKE ONE TABLET BY MOUTH TWICE DAILY TO PREVENT SHINGLES WHILE ON TREATMENT FOR MULTIPLE MYELOMA..
     Route: 048
  5. ALBUTEROL SULFATE [Concomitant]
     Active Substance: ALBUTEROL SULFATE
     Indication: Wheezing
     Dosage: INH 2 PUFFS BY MOUTH EVERY 6 HRS AS NEEDED FOR WHEEZING?200 PUFFS ( 8.5 GM)
     Route: 048
  6. CHLORPROMAZINE [Concomitant]
     Active Substance: CHLORPROMAZINE
     Indication: Product used for unknown indication
     Dosage: TAKE 1 TABLET BY ?MOUTH EVERY ?MORNING AND 2 ?TABLETS EVERY ?NIGHT AT BEDTIME
  7. DESCOVY [Concomitant]
     Active Substance: EMTRICITABINE\TENOFOVIR ALAFENAMIDE FUMARATE
     Indication: Product used for unknown indication
     Dosage: 200MG.25 MG TABLET?TAKE ONE TABET BY MOUTH EVERY DAY
     Route: 048
  8. DICLOFENAC [Concomitant]
     Active Substance: DICLOFENAC
     Indication: Pain
     Dosage: 1% GEL 100 GM APPLY 2 GRAMS OF (QUARTER SIZE) TO AFFECTED AREA THREE TIMES DAILY AS NEEDED FOR PAIN
     Route: 048
  9. DRONABINOL [Concomitant]
     Active Substance: DRONABINOL
     Indication: Product used for unknown indication
     Dosage: TAKE ONE CAPSULE BY MOUTH TWICE DAILY ADMINISTER BEFORE LUNCH AND EVENING MEAL/DINNER.
     Route: 048
  10. DOXYCYCLINE [Concomitant]
     Active Substance: DOXYCYCLINE
     Indication: Product used for unknown indication
     Dosage: TAKE ONE CAPSULE BY MOUTH TWICE DAILY WITH FOOD FOR 10 DAYS.
     Route: 048
  11. ESCITALOPRAM [Concomitant]
     Active Substance: ESCITALOPRAM OXALATE
     Indication: Product used for unknown indication
     Dosage: TAKE ONE TABLET BY MOUTH AT BEDTIME
     Route: 048
  12. FAMOTIDINE [Concomitant]
     Active Substance: FAMOTIDINE
     Indication: Product used for unknown indication
     Dosage: TAKE ONE TABLET BY MOUTH EVERY DAY
     Route: 048
  13. FLUOCINONIDE [Concomitant]
     Active Substance: FLUOCINONIDE
     Indication: Pruritus
     Dosage: 0.05%  CREAM 15 GM?APPLY EXTERNALLY TO AFFECTED AREA TWICE DAILY AS NEEDED FOR EAR ITCH
  14. OXYCODONE AND ACETAMINOPHEN [Concomitant]
     Active Substance: ACETAMINOPHEN\OXYCODONE HYDROCHLORIDE
     Indication: Pain
     Dosage: 7.5-325 MG TAB ?TAKE ONE TABLET BY MOUTH EVERY 4 HR AS NEEDED FOR BREAKTHROUGH PAIN
     Route: 048
  15. XGEVA [Concomitant]
     Active Substance: DENOSUMAB
     Dosage: 120MG/1.7 ML
  16. MORPHINE SULFATE [Concomitant]
     Active Substance: MORPHINE SULFATE
     Indication: Cancer pain
     Dosage: 30 MG ER  AND 60 MG ER TABS 12 H?TAKE ONE TABLET BY MOUTH EVERY 12 HR FOR CANCER PAIN
     Route: 048
  17. OMEPRAZOLE [Concomitant]
     Active Substance: OMEPRAZOLE
     Dosage: 40 MG CAPSULES
     Route: 048
  18. ONDANSETRON [Concomitant]
     Active Substance: ONDANSETRON
     Indication: Nausea
     Dosage: 8 MG TABLET ?DISSOLVE ONE TABLET BY MOUTH EVERY 6 HR AS NEEDED FOR NAUSEA.
     Route: 048
  19. TIVICAY [Concomitant]
     Active Substance: DOLUTEGRAVIR SODIUM
     Dosage: 50 MG TABLET?TAKE ONE TABLET BY MOUTH EVERY DAY
     Route: 048
  20. VITAMIN D2 [Concomitant]
     Active Substance: ERGOCALCIFEROL
     Dosage: 50,000 IU (ERGO) CAP RX?TAKE 1CAPUSLE BY MOUTH EVERY WEEK FOR 12 WEEKS
     Route: 048
  21. KYPROLIS [Concomitant]
     Active Substance: CARFILZOMIB
     Dosage: 60 MG VIAL FOR INJ  1 VIAL
  22. FUROSEMIDE [Concomitant]
     Active Substance: FUROSEMIDE
     Indication: Swelling
     Dosage: TAKE ONE TABLET BY MOUTH EVERY DAY AS NEEDED FOR SWELLING
     Route: 048
  23. LINZESS [Concomitant]
     Active Substance: LINACLOTIDE
     Indication: Swelling
     Dosage: TAKE ONE TABLET BY MOUTH EVERY DAY BEFORE BREAKFAST
     Route: 048
  24. MEGESTROL ACETATE [Concomitant]
     Active Substance: MEGESTROL ACETATE
     Indication: Appetite disorder
     Dosage: 40 MG/ML SUS?SHAKE LIQUID AND TAKE 20 ML BY MOUTH EVERY DAY
     Route: 048
  25. PEG 3350 [Concomitant]
     Active Substance: POLYETHYLENE GLYCOL 3350
     Indication: Product used for unknown indication
     Dosage: ELECTROLYTES UNFLAV?TAKE AS DIRECTED NIGHT BEFORE AND MORNING OF COLONOSCOPY
  26. FENTANYL [Concomitant]
     Active Substance: FENTANYL
     Dosage: 12MCG/HR,25MCG/HR , 50MCG/HR ,?APPLY 1 PATCH TOPICALLY EVERY 72 HOURS AND APPLY 1 PATCH TOPICALLY TO
     Route: 061

REACTIONS (1)
  - Neutropenia [Unknown]

NARRATIVE: CASE EVENT DATE: 20230101
